FAERS Safety Report 4450371-5 (Version None)
Quarter: 2004Q3

REPORT INFORMATION
  Report Type: 
  Country: None (occurrence: None)
  Receive Date: 20040914
  Receipt Date: 20040826
  Transmission Date: 20050211
  Serious: Yes (Hospitalization)
  Sender: FDA-Public Use
  Company Number: A02200402599

PATIENT
  Age: 83 Year
  Sex: Male

DRUGS (9)
  1. PLAVIX [Suspect]
     Dosage: 75 MG OD ORAL
     Route: 048
     Dates: start: 20040722, end: 20040723
  2. AUGMENTIN [Suspect]
     Dosage: 500 MG BID
     Route: 048
     Dates: start: 20040721, end: 20040724
  3. OMEPRAZOLE [Suspect]
     Dosage: 20 MG QD/40 MG QD ORAL/INTRAVENOUS NOS: TIME TO ONSET : 3 DAYS
     Route: 048
     Dates: start: 20040721, end: 20040722
  4. OMEPRAZOLE [Suspect]
     Dosage: 20 MG QD/40 MG QD ORAL/INTRAVENOUS NOS: TIME TO ONSET : 3 DAYS
     Route: 048
     Dates: start: 20040723, end: 20040723
  5. TAVANIC (LEVOFLOXACIN) [Concomitant]
  6. EFFEXOR [Concomitant]
  7. CIPRALAN [Concomitant]
  8. MODOPAR (LEVODOPA/BENSERAZIDE) [Concomitant]
  9. GLUCOSE [Concomitant]

REACTIONS (10)
  - BLOOD CREATININE INCREASED [None]
  - BLOOD UREA INCREASED [None]
  - HAEMATOCRIT DECREASED [None]
  - HAEMOGLOBIN DECREASED [None]
  - HEPATITIS CHOLESTATIC [None]
  - NEUTROPHIL COUNT INCREASED [None]
  - PLATELET COUNT INCREASED [None]
  - RED BLOOD CELL COUNT DECREASED [None]
  - RED BLOOD CELL SEDIMENTATION RATE INCREASED [None]
  - WHITE BLOOD CELL COUNT INCREASED [None]
